FAERS Safety Report 8289390-X (Version None)
Quarter: 2012Q1

REPORT INFORMATION
  Report Type: 
  Country: None (occurrence: None)
  Receive Date: 20120322
  Receipt Date: 20120220
  Transmission Date: 20120608
  Serious: Yes (Other)
  Sender: FDA-Public Use
  Company Number: UTC-015829

PATIENT
  Age: 68 Year
  Sex: Male
  Weight: 83.63 kg

DRUGS (2)
  1. TYVASO [Suspect]
     Dosage: 18-54 MCG (4 IN 1 D), INHALATION
     Route: 055
     Dates: start: 20110517
  2. REVATIO [Concomitant]

REACTIONS (4)
  - RENAL FAILURE [None]
  - DYSPNOEA EXERTIONAL [None]
  - NAUSEA [None]
  - WEIGHT DECREASED [None]
